FAERS Safety Report 8310519-9 (Version None)
Quarter: 2012Q2

REPORT INFORMATION
  Report Type: 
  Country: None (occurrence: None)
  Receive Date: 20120425
  Receipt Date: 20120423
  Transmission Date: 20120825
  Serious: Yes (Hospitalization, Other)
  Sender: FDA-Public Use
  Company Number: US-JNJFOC-20120301014

PATIENT
  Sex: Female

DRUGS (2)
  1. ROGAINE (FOR WOMEN) [Suspect]
     Route: 065
  2. ROGAINE (FOR WOMEN) [Suspect]
     Indication: PRODUCT USED FOR UNKNOWN INDICATION
     Route: 065
     Dates: start: 20120101

REACTIONS (2)
  - THERMAL BURN [None]
  - INJURY [None]
